FAERS Safety Report 21517165 (Version 4)
Quarter: 2023Q4

REPORT INFORMATION
  Report Type: Report from Study
  Country: US (occurrence: US)
  Receive Date: 20221028
  Receipt Date: 20231218
  Transmission Date: 20240110
  Serious: Yes (Other)
  Sender: FDA-Public Use
  Company Number: US-ABBVIE-4178539

PATIENT
  Age: 88 Year
  Sex: Female

DRUGS (2)
  1. SKYRIZI [Suspect]
     Active Substance: RISANKIZUMAB-RZAA
     Indication: Psoriasis
     Route: 058
  2. SKYRIZI [Suspect]
     Active Substance: RISANKIZUMAB-RZAA
     Route: 058

REACTIONS (5)
  - Malignant urinary tract neoplasm [Recovering/Resolving]
  - Asthenia [Unknown]
  - Surgery [Unknown]
  - Uterine cancer [Unknown]
  - Infection [Unknown]

NARRATIVE: CASE EVENT DATE: 20221018
